FAERS Safety Report 6330682-9 (Version None)
Quarter: 2009Q3

REPORT INFORMATION
  Report Type: 
  Country: None (occurrence: None)
  Receive Date: 20090827
  Receipt Date: 20090820
  Transmission Date: 20100115
  Serious: Yes (Life-Threatening, Hospitalization)
  Sender: FDA-Public Use
  Company Number: JP-JNJFOC-20090806512

PATIENT
  Sex: Male

DRUGS (2)
  1. LEVOFLOXACIN [Suspect]
     Indication: PHARYNGITIS
     Route: 048
  2. TRANSAMIN [Suspect]
     Indication: PHARYNGITIS
     Route: 065

REACTIONS (2)
  - ANAPHYLACTIC SHOCK [None]
  - RESPIRATORY ARREST [None]
